FAERS Safety Report 8465159-8 (Version None)
Quarter: 2012Q2

REPORT INFORMATION
  Report Type: 
  Country: None (occurrence: None)
  Receive Date: 20120626
  Receipt Date: 20120612
  Transmission Date: 20120825
  Serious: Yes (Hospitalization)
  Sender: FDA-Public Use
  Company Number: PHEH2012US010562

PATIENT
  Sex: Male

DRUGS (1)
  1. AFINITOR [Suspect]
     Dosage: UNK
     Dates: end: 20120201

REACTIONS (6)
  - GASTRIC CANCER [None]
  - NEOPLASM PROGRESSION [None]
  - FATIGUE [None]
  - HYPERCALCAEMIA OF MALIGNANCY [None]
  - NEOPLASM MALIGNANT [None]
  - GENERAL PHYSICAL HEALTH DETERIORATION [None]
